FAERS Safety Report 23444438 (Version 1)
Quarter: 2024Q1

REPORT INFORMATION
  Report Type: Spontaneous
  Country: US (occurrence: US)
  Receive Date: 20240125
  Receipt Date: 20240125
  Transmission Date: 20240410
  Serious: Yes (Other)
  Sender: FDA-Public Use
  Company Number: US-TEVA-VS-3138799

PATIENT
  Sex: Male

DRUGS (1)
  1. UZEDY [Suspect]
     Active Substance: RISPERIDONE
     Route: 065
     Dates: start: 202309

REACTIONS (6)
  - Anaphylactic reaction [Recovered/Resolved]
  - Speech disorder [Recovered/Resolved]
  - Off label use [Unknown]
  - Swollen tongue [Recovered/Resolved]
  - Joint stiffness [Recovered/Resolved]
  - Dystonia [Recovered/Resolved]
